APPROVED DRUG PRODUCT: INDERIDE LA 80/50
Active Ingredient: HYDROCHLOROTHIAZIDE; PROPRANOLOL HYDROCHLORIDE
Strength: 50MG;80MG
Dosage Form/Route: CAPSULE, EXTENDED RELEASE;ORAL
Application: N019059 | Product #001
Applicant: WYETH AYERST LABORATORIES
Approved: Jul 3, 1985 | RLD: No | RS: No | Type: DISCN